FAERS Safety Report 7650883-7 (Version None)
Quarter: 2011Q3

REPORT INFORMATION
  Report Type: 
  Country: None (occurrence: None)
  Receive Date: 20110802
  Receipt Date: 20100409
  Transmission Date: 20111222
  Serious: No
  Sender: FDA-Public Use
  Company Number: US-BAYER-2011-048745

PATIENT

DRUGS (1)
  1. AVELOX [Suspect]

REACTIONS (1)
  - HYPERSENSITIVITY [None]
